FAERS Safety Report 17874422 (Version 2)
Quarter: 2020Q2

REPORT INFORMATION
  Report Type: Spontaneous
  Country: AR (occurrence: AR)
  Receive Date: 20200609
  Receipt Date: 20200618
  Transmission Date: 20200714
  Serious: Yes (Other)
  Sender: FDA-Public Use
  Company Number: AR-PFIZER INC-2020221448

PATIENT
  Age: 59 Year
  Sex: Female

DRUGS (1)
  1. SOMAVERT [Suspect]
     Active Substance: PEGVISOMANT
     Indication: ACROMEGALY
     Dosage: 15 MG, DAILY
     Dates: start: 20111201

REACTIONS (3)
  - Arthralgia [Unknown]
  - Gait inability [Unknown]
  - Mental disorder [Unknown]

NARRATIVE: CASE EVENT DATE: 202006
